FAERS Safety Report 9391230 (Version 6)
Quarter: 2014Q1

REPORT INFORMATION
  Report Type: Spontaneous
  Country: US (occurrence: US)
  Receive Date: 20130709
  Receipt Date: 20140213
  Transmission Date: 20141002
  Serious: Yes (Other)
  Sender: FDA-Public Use
  Company Number: US-PFIZER INC-2013198621

PATIENT
  Age: 70 Year
  Sex: Male
  Weight: 71.66 kg

DRUGS (8)
  1. SUTENT [Suspect]
     Indication: RENAL CANCER
     Dosage: 37.5 MG DAILY ( 21 ON 7 OFF)
     Route: 048
     Dates: start: 20130524
  2. LORTAB [Concomitant]
     Dosage: UNK
  3. DOXAZOSIN [Concomitant]
     Dosage: UNK
  4. GABAPENTIN [Concomitant]
     Dosage: UNK
  5. METFORMIN [Concomitant]
     Dosage: UNK
  6. OXYBUTYNIN [Concomitant]
     Dosage: UNK
  7. RANITIDINE [Concomitant]
     Dosage: UNK
  8. CLOPIDOGREL [Concomitant]
     Dosage: UNK

REACTIONS (5)
  - Somnolence [Recovering/Resolving]
  - Tongue blistering [Unknown]
  - Diarrhoea [Not Recovered/Not Resolved]
  - Weight decreased [Unknown]
  - Glossodynia [Unknown]
